FAERS Safety Report 17349227 (Version 2)
Quarter: 2020Q1

REPORT INFORMATION
  Report Type: Spontaneous
  Country: US (occurrence: US)
  Receive Date: 20200129
  Receipt Date: 20200221
  Transmission Date: 20200409
  Serious: No
  Sender: FDA-Public Use
  Company Number: US-TAKEDA-2020TUS004532

PATIENT
  Sex: Female

DRUGS (2)
  1. REVLIMID [Concomitant]
     Active Substance: LENALIDOMIDE
     Dosage: 20 MILLIGRAM
     Route: 065
  2. NINLARO [Suspect]
     Active Substance: IXAZOMIB CITRATE
     Indication: PLASMA CELL MYELOMA
     Dosage: 4 MILLIGRAM
     Route: 048

REACTIONS (8)
  - Purpura [Unknown]
  - Skin burning sensation [Unknown]
  - Skin exfoliation [Unknown]
  - Constipation [Unknown]
  - Peripheral swelling [Unknown]
  - Rash erythematous [Unknown]
  - Abdominal discomfort [Unknown]
  - Tremor [Unknown]
